FAERS Safety Report 8085148-5 (Version None)
Quarter: 2012Q1

REPORT INFORMATION
  Report Type: 
  Country: None (occurrence: None)
  Receive Date: 20120128
  Receipt Date: 20110315
  Transmission Date: 20120608
  Serious: No
  Sender: FDA-Public Use
  Company Number: US-ABBOTT-11P-163-0711603-00

PATIENT
  Age: 52 Year
  Sex: Female

DRUGS (9)
  1. NEURONTIN [Concomitant]
     Indication: RHEUMATOID ARTHRITIS
  2. METOPROLOL TARTRATE [Concomitant]
     Indication: HYPERTENSION
  3. HUMIRA [Suspect]
     Indication: RHEUMATOID ARTHRITIS
     Dates: start: 20030301
  4. DEPAKOTE [Concomitant]
     Indication: BIPOLAR DISORDER
  5. MULTI-VITAMIN [Concomitant]
     Indication: VITAMIN SUPPLEMENTATION
     Dosage: DAILY
  6. LOVAZA [Concomitant]
     Indication: BLOOD CHOLESTEROL INCREASED
  7. NEURONTIN [Concomitant]
     Indication: DEPRESSION
  8. TRAMADOL HCL [Concomitant]
     Indication: PAIN
  9. RANITIDINE [Concomitant]
     Indication: DYSPEPSIA

REACTIONS (2)
  - SINUS DISORDER [None]
  - COUGH [None]
